FAERS Safety Report 24721138 (Version 1)
Quarter: 2024Q4

REPORT INFORMATION
  Report Type: Spontaneous
  Country: US (occurrence: None)
  Receive Date: 20241210
  Receipt Date: 20241210
  Transmission Date: 20250114
  Serious: Yes (Other)
  Sender: Public
  Company Number: None

PATIENT
  Sex: Female

DRUGS (12)
  1. BOTOX [Suspect]
     Active Substance: ONABOTULINUMTOXINA
     Indication: Migraine
     Dosage: OTHER FREQUENCY : 90 DAYS;?
     Route: 005
     Dates: start: 20230504
  2. ALBUTEROL AER HFA [Concomitant]
  3. AMITRIPTYLIN TAB 10MG [Concomitant]
  4. BUDES/FORMOT AER 160-4.5 [Concomitant]
  5. BUDES/FORMOT AER 160-4.5 [Concomitant]
  6. DULOXETINE CAP 30MG [Concomitant]
  7. DULOXETINE CAP 60MG [Concomitant]
  8. GABAPENTIN [Concomitant]
     Active Substance: GABAPENTIN
  9. LEVETIRACETA TAB 1000MG [Concomitant]
  10. LEVETIRACETA TAB 500MG [Concomitant]
  11. PIMECROLIMUS CRE 1% [Concomitant]
  12. POT CL MICRO TAB 20MEQ ER [Concomitant]

REACTIONS (1)
  - Tongue neoplasm malignant stage unspecified [None]
